FAERS Safety Report 6520272-7 (Version None)
Quarter: 2009Q4

REPORT INFORMATION
  Report Type: 
  Country: None (occurrence: None)
  Receive Date: 20091229
  Receipt Date: 20091221
  Transmission Date: 20100525
  Serious: Yes (Other)
  Sender: FDA-Public Use
  Company Number: CA-PFIZER INC-2009313175

PATIENT
  Age: 85 Year
  Sex: Male

DRUGS (15)
  1. DEPO-MEDROL [Suspect]
     Dosage: UNK
     Route: 014
  2. METFORMIN [Concomitant]
  3. AMOXIL [Concomitant]
  4. TERAZOSIN [Concomitant]
  5. NITROGLYCERIN [Concomitant]
  6. GLYBURIDE [Concomitant]
  7. GENTAMICIN [Concomitant]
  8. OXAZEPAM [Concomitant]
  9. RABEPRAZOLE [Concomitant]
  10. DICLOFENAC [Concomitant]
  11. CRESTOR [Concomitant]
  12. TYLENOL W/ CODEINE NO. 3 [Concomitant]
  13. RAMIPRIL [Concomitant]
  14. ADALAT CC [Concomitant]
  15. OXYCODONE [Concomitant]

REACTIONS (1)
  - BLOOD GLUCOSE INCREASED [None]
